FAERS Safety Report 7532513-8 (Version None)
Quarter: 2011Q2

REPORT INFORMATION
  Report Type: 
  Country: None (occurrence: None)
  Receive Date: 20110608
  Receipt Date: 20110526
  Transmission Date: 20111010
  Serious: Yes (Other)
  Sender: FDA-Public Use
  Company Number: PHHY2011CR46162

PATIENT
  Age: 82 Year
  Sex: Female

DRUGS (4)
  1. ALDOMET [Concomitant]
  2. CARVEDILOL [Concomitant]
  3. DIOVAN [Suspect]
     Indication: HYPERTENSION
     Dosage: 160 MG/ DAY
     Route: 048
     Dates: start: 20110518, end: 20110526
  4. FUROSEMIDE [Concomitant]

REACTIONS (3)
  - BRONCHOSPASM [None]
  - COUGH [None]
  - THROAT TIGHTNESS [None]
